FAERS Safety Report 13899713 (Version 1)
Quarter: 2017Q3

REPORT INFORMATION
  Report Type: Spontaneous
  Country: US (occurrence: None)
  Receive Date: 20170824
  Receipt Date: 20170824
  Transmission Date: 20171127
  Serious: Yes (Life-Threatening, Other)
  Sender: FDA-Public Use
  Company Number: None

PATIENT
  Age: 63 Year
  Sex: Male
  Weight: 68.04 kg

DRUGS (6)
  1. SILDENAFIL CITRATE 20MG TAB [Suspect]
     Active Substance: SILDENAFIL CITRATE
     Indication: NECK PAIN
     Dosage: 3-5 TABS 30 MIN. BEFORE NEEDED, MOUTH
     Route: 048
     Dates: start: 20170724, end: 20170729
  2. MORPHINE [Concomitant]
     Active Substance: MORPHINE
  3. MULTIVITAMINS [Concomitant]
     Active Substance: VITAMINS
  4. SILDENAFIL CITRATE 20MG TAB [Suspect]
     Active Substance: SILDENAFIL CITRATE
     Indication: ERECTILE DYSFUNCTION
     Dosage: 3-5 TABS 30 MIN. BEFORE NEEDED, MOUTH
     Route: 048
     Dates: start: 20170724, end: 20170729
  5. FLONASE [Concomitant]
     Active Substance: FLUTICASONE PROPIONATE
  6. NECK BRACE [Concomitant]

REACTIONS (5)
  - Hypothermia [None]
  - Palpitations [None]
  - Adverse drug reaction [None]
  - Dyspnoea [None]
  - Blood pressure diastolic decreased [None]

NARRATIVE: CASE EVENT DATE: 20170724
